FAERS Safety Report 17466884 (Version 1)
Quarter: 2020Q1

REPORT INFORMATION
  Report Type: Spontaneous
  Country: US (occurrence: US)
  Receive Date: 20200213
  Receipt Date: 20200213
  Transmission Date: 20200409
  Serious: Yes (Life-Threatening, Hospitalization)
  Sender: FDA-Public Use
  Company Number: None

PATIENT
  Age: 69 Year
  Sex: Male
  Weight: 73.48 kg

DRUGS (1)
  1. HYDROCHLOROTHIAZIDE. [Suspect]
     Active Substance: HYDROCHLOROTHIAZIDE
     Indication: HYPERTENSION
     Route: 048
     Dates: start: 20180724, end: 20191011

REACTIONS (6)
  - Pancreatitis acute [None]
  - Syncope [None]
  - Faecaloma [None]
  - Loss of consciousness [None]
  - Therapy cessation [None]
  - Abdominal pain [None]

NARRATIVE: CASE EVENT DATE: 20191011
